FAERS Safety Report 4999645-X (Version None)
Quarter: 2006Q2

REPORT INFORMATION
  Report Type: 
  Country: None (occurrence: None)
  Receive Date: 20060511
  Receipt Date: 20060331
  Transmission Date: 20061013
  Serious: Yes (Death, Life-Threatening, Hospitalization)
  Sender: FDA-Public Use
  Company Number: US-MERCK-0604USA00097

PATIENT
  Sex: Female
  Weight: 64 kg

DRUGS (2)
  1. VIOXX [Suspect]
     Indication: OSTEOARTHRITIS
     Route: 048
     Dates: start: 20021212, end: 20040401
  2. VIOXX [Suspect]
     Route: 048
     Dates: start: 20021212, end: 20040401

REACTIONS (20)
  - ABDOMINAL PAIN LOWER [None]
  - ATRIAL THROMBOSIS [None]
  - BACK PAIN [None]
  - CACHEXIA [None]
  - CARDIAC FAILURE CONGESTIVE [None]
  - CARDIO-RESPIRATORY ARREST [None]
  - CEREBRAL INFARCTION [None]
  - CHEST PAIN [None]
  - COAGULOPATHY [None]
  - DEHYDRATION [None]
  - DYSARTHRIA [None]
  - DYSPNOEA [None]
  - FALL [None]
  - HERPES ZOSTER [None]
  - HYPERKALAEMIA [None]
  - HYPONATRAEMIA [None]
  - INAPPROPRIATE ANTIDIURETIC HORMONE SECRETION [None]
  - METABOLIC ENCEPHALOPATHY [None]
  - MYOCARDIAL INFARCTION [None]
  - RENAL FAILURE [None]
